FAERS Safety Report 10932565 (Version 1)
Quarter: 2015Q1

REPORT INFORMATION
  Report Type: Spontaneous
  Country: None (occurrence: None)
  Receive Date: 20150319
  Receipt Date: 20150319
  Transmission Date: 20150721
  Serious: No
  Sender: FDA-Public Use
  Company Number: None

PATIENT
  Age: 3 Year
  Sex: Male
  Weight: 20 kg

DRUGS (1)
  1. MONTELUKAST [Suspect]
     Active Substance: MONTELUKAST SODIUM
     Indication: ASTHMA PROPHYLAXIS
     Dosage: SINGULAIR
     Route: 048

REACTIONS (8)
  - Anxiety [None]
  - Abnormal behaviour [None]
  - Insomnia [None]
  - Stress [None]
  - Nightmare [None]
  - Agitation [None]
  - Irritability [None]
  - Aggression [None]

NARRATIVE: CASE EVENT DATE: 20150221
